FAERS Safety Report 22390673 (Version 2)
Quarter: 2023Q2

REPORT INFORMATION
  Report Type: Report from Study
  Country: ES (occurrence: ES)
  Receive Date: 20230531
  Receipt Date: 20230611
  Transmission Date: 20230722
  Serious: Yes (Life-Threatening, Hospitalization, Other)
  Sender: FDA-Public Use
  Company Number: ES-ABBVIE-5185457

PATIENT
  Sex: Male

DRUGS (3)
  1. CARBIDOPA\LEVODOPA [Suspect]
     Active Substance: CARBIDOPA\LEVODOPA
     Indication: Parkinson^s disease
     Route: 050
     Dates: start: 20200813
  2. CARBIDOPA\LEVODOPA [Suspect]
     Active Substance: CARBIDOPA\LEVODOPA
     Dosage: CONTINUOUS DOSE DECREASED TO 2 ML
     Route: 050
     Dates: start: 202305, end: 2023
  3. CARBIDOPA\LEVODOPA [Suspect]
     Active Substance: CARBIDOPA\LEVODOPA
     Dosage: CONTINUOUS DOSE DECREASED TO 3 ML
     Route: 050
     Dates: end: 202305

REACTIONS (4)
  - Pyrexia [Recovering/Resolving]
  - Decubitus ulcer [Recovering/Resolving]
  - Dyskinesia [Recovering/Resolving]
  - Terminal state [Unknown]

NARRATIVE: CASE EVENT DATE: 20230101
